FAERS Safety Report 8499664-5 (Version None)
Quarter: 2012Q2

REPORT INFORMATION
  Report Type: 
  Country: None (occurrence: None)
  Receive Date: 20120629
  Receipt Date: 20120620
  Transmission Date: 20120825
  Serious: Yes (Other)
  Sender: FDA-Public Use
  Company Number: 217914

PATIENT
  Sex: Female

DRUGS (3)
  1. INNOHEP [Suspect]
     Indication: THROMBOSIS PROPHYLAXIS
  2. ASPIRIN [Concomitant]
  3. PREDNISONE TAB [Concomitant]

REACTIONS (4)
  - VENOUS THROMBOSIS IN PREGNANCY [None]
  - MATERNAL EXPOSURE DURING PREGNANCY [None]
  - THROMBOSIS [None]
  - SYSTEMIC LUPUS ERYTHEMATOSUS [None]
